FAERS Safety Report 17468379 (Version 1)
Quarter: 2020Q1

REPORT INFORMATION
  Report Type: Spontaneous
  Country: US (occurrence: US)
  Receive Date: 20200226
  Receipt Date: 20200226
  Transmission Date: 20200409
  Serious: Yes (Hospitalization)
  Sender: FDA-Public Use
  Company Number: None

PATIENT
  Age: 71 Year
  Sex: Male
  Weight: 108.9 kg

DRUGS (13)
  1. FENTANYL TRANSDERMAL SYSTEM [Concomitant]
     Active Substance: FENTANYL
     Dates: start: 20200118
  2. LOSARTAN. [Concomitant]
     Active Substance: LOSARTAN
     Dates: start: 20050101
  3. METFORMIN [Concomitant]
     Active Substance: METFORMIN HYDROCHLORIDE
     Dates: start: 20050101
  4. PEMBROLIZUMAB. [Concomitant]
     Active Substance: PEMBROLIZUMAB
     Dates: start: 20191204
  5. DIFLUCAN [Concomitant]
     Active Substance: FLUCONAZOLE
     Dates: start: 20200213, end: 20200226
  6. DEXAMETHASONE. [Concomitant]
     Active Substance: DEXAMETHASONE
     Dates: start: 20200213
  7. AMLODIPINE [Concomitant]
     Active Substance: AMLODIPINE BESYLATE
     Dates: start: 20050101
  8. CISPLATIN. [Suspect]
     Active Substance: CISPLATIN
     Indication: HEAD AND NECK CANCER
     Dosage: ?          OTHER FREQUENCY:WEEKLY;?
     Route: 041
     Dates: start: 20191211, end: 20200122
  9. RADIATION THERAPY [Suspect]
     Active Substance: RADIATION THERAPY
     Indication: HEAD AND NECK CANCER
     Route: 065
     Dates: start: 20191209, end: 20200130
  10. PANTOPRAZOLE [Concomitant]
     Active Substance: PANTOPRAZOLE
     Dates: start: 20180101
  11. CISPLATIN. [Suspect]
     Active Substance: CISPLATIN
     Indication: SQUAMOUS CELL CARCINOMA
     Dosage: ?          OTHER FREQUENCY:WEEKLY;?
     Route: 041
     Dates: start: 20191211, end: 20200122
  12. RADIATION THERAPY [Suspect]
     Active Substance: RADIATION THERAPY
     Indication: SQUAMOUS CELL CARCINOMA
     Route: 065
     Dates: start: 20191209, end: 20200130
  13. OXYCODONE [Concomitant]
     Active Substance: OXYCODONE
     Dates: start: 20200113

REACTIONS (1)
  - Dehydration [None]

NARRATIVE: CASE EVENT DATE: 20200220
